FAERS Safety Report 5631573-9 (Version None)
Quarter: 2008Q1

REPORT INFORMATION
  Report Type: 
  Country: None (occurrence: None)
  Receive Date: 20080215
  Receipt Date: 20080211
  Transmission Date: 20080703
  Serious: No
  Sender: FDA-Public Use
  Company Number: APP200800046

PATIENT
  Age: 59 Year
  Sex: Male

DRUGS (14)
  1. HEPARIN SODIUM INJECTION [Suspect]
     Indication: ANTICOAGULANT THERAPY
     Dosage: 2000-5000 UNITS DILUTED IN 5 ML SALINE (ONCE), INTRAVENOUS BOLUS
     Route: 040
     Dates: start: 20080119, end: 20080119
  2. HEPARIN SODIUM INJECTION [Suspect]
  3. PHOSLO [Concomitant]
  4. ZENOFER [Concomitant]
  5. METOPROLOL TARTRATE [Concomitant]
  6. ISOSORBIDE (ISOSORBIDE) [Concomitant]
  7. LISINOPRIL [Concomitant]
  8. LOVASTATIN [Concomitant]
  9. PRILOSEC [Concomitant]
  10. ALLOPURINOL [Concomitant]
  11. ASPIRIN [Concomitant]
  12. INSULIN NOVOLOG (INSULIN) [Concomitant]
  13. REGLAN [Concomitant]
  14. ZEMPLAR [Concomitant]

REACTIONS (4)
  - DYSPNOEA [None]
  - HYPERHIDROSIS [None]
  - HYPOTENSION [None]
  - MUSCULOSKELETAL PAIN [None]
